FAERS Safety Report 5756678-3 (Version None)
Quarter: 2008Q2

REPORT INFORMATION
  Report Type: 
  Country: None (occurrence: None)
  Receive Date: 20080528
  Receipt Date: 20080516
  Transmission Date: 20081010
  Serious: Yes (Hospitalization)
  Sender: FDA-Public Use
  Company Number: 2008SP002428

PATIENT
  Age: 56 Year
  Sex: Male
  Weight: 82 kg

DRUGS (11)
  1. TEMOZOLOMIDE [Suspect]
     Indication: GLIOBLASTOMA
     Dosage: 50 MG/M2; QD; PO
     Route: 048
     Dates: start: 20071212, end: 20080126
  2. TEMOZOLOMIDE [Suspect]
     Indication: GLIOBLASTOMA
     Dosage: 50 MG/M2; QD; PO
     Route: 048
     Dates: start: 20080101
  3. SORAFENIB [Suspect]
     Dosage: 400 MG; BID; PO; 400 MG; QD; PO
     Route: 048
     Dates: start: 20071212, end: 20080125
  4. SORAFENIB [Suspect]
     Dosage: 400 MG; BID; PO; 400 MG; QD; PO
     Route: 048
     Dates: start: 20080101, end: 20080316
  5. SORAFENIB [Suspect]
     Dosage: 400 MG; BID; PO; 400 MG; QD; PO
     Route: 048
     Dates: start: 20080126
  6. SORAFENIB [Suspect]
     Dosage: 400 MG; BID; PO; 400 MG; QD; PO
     Route: 048
     Dates: start: 20080317
  7. DILANTIN [Concomitant]
  8. SENOKOT [Concomitant]
  9. CENTRUM SILVER [Concomitant]
  10. LORTAB [Concomitant]
  11. B6 [Concomitant]

REACTIONS (4)
  - ABDOMINAL PAIN [None]
  - BACK PAIN [None]
  - CHOLELITHIASIS [None]
  - PANCREATITIS ACUTE [None]
